FAERS Safety Report 14784382 (Version 1)
Quarter: 2018Q2

REPORT INFORMATION
  Report Type: Report from Study
  Country: GB (occurrence: GB)
  Receive Date: 20180420
  Receipt Date: 20180420
  Transmission Date: 20180711
  Serious: Yes (Other)
  Sender: FDA-Public Use
  Company Number: GB-SA-2018SA106730

PATIENT

DRUGS (3)
  1. ALEMTUZUMAB [Suspect]
     Active Substance: ALEMTUZUMAB
     Indication: BONE MARROW CONDITIONING REGIMEN
     Route: 065
  2. FLUDARABINE PHOSPHATE. [Suspect]
     Active Substance: FLUDARABINE PHOSPHATE
     Indication: BONE MARROW CONDITIONING REGIMEN
     Route: 065
  3. TREOSULFAN [Suspect]
     Active Substance: TREOSULFAN
     Indication: BONE MARROW CONDITIONING REGIMEN
     Route: 065

REACTIONS (2)
  - Mucoepidermoid carcinoma of salivary gland [Unknown]
  - Off label use [Unknown]
